FAERS Safety Report 6620872-X (Version None)
Quarter: 2010Q1

REPORT INFORMATION
  Report Type: 
  Country: None (occurrence: None)
  Receive Date: 20100303
  Receipt Date: 20100216
  Transmission Date: 20100710
  Serious: Yes (Hospitalization)
  Sender: FDA-Public Use
  Company Number: 2010000565

PATIENT
  Age: 78 Year
  Sex: Female
  Weight: 54.3 kg

DRUGS (3)
  1. ERLOTINIB HYDROCHLORIDE [Suspect]
     Indication: ADENOCARCINOMA PANCREAS
     Dosage: (100 MG, QD), ORAL
     Route: 048
     Dates: start: 20091209, end: 20100131
  2. GEMCITABINE [Suspect]
     Indication: ADENOCARCINOMA PANCREAS
     Dosage: (1000 MG/M2, DAYS 1, 8, 15), INTRAVENOUS
     Route: 042
     Dates: start: 20091209
  3. ASPIRIN [Concomitant]

REACTIONS (6)
  - ANAEMIA [None]
  - DEEP VEIN THROMBOSIS [None]
  - DUODENAL PERFORATION [None]
  - HYPOCALCAEMIA [None]
  - LYMPHOPENIA [None]
  - PNEUMOPERITONEUM [None]
